FAERS Safety Report 18412078 (Version 3)
Quarter: 2021Q1

REPORT INFORMATION
  Report Type: Spontaneous
  Country: IT (occurrence: IT)
  Receive Date: 20201021
  Receipt Date: 20210208
  Transmission Date: 20210419
  Serious: Yes (Hospitalization, Other)
  Sender: FDA-Public Use
  Company Number: IT-MYLANLABS-2020M1088523

PATIENT
  Age: 81 Year
  Sex: Male

DRUGS (13)
  1. SPIRIVA [Interacting]
     Active Substance: TIOTROPIUM BROMIDE MONOHYDRATE
     Indication: CHRONIC OBSTRUCTIVE PULMONARY DISEASE
     Dosage: 18 MICROGRAM, QD
  2. APIXABAN [Interacting]
     Active Substance: APIXABAN
     Indication: CEREBROVASCULAR ACCIDENT PROPHYLAXIS
     Dosage: 5 MG, ALTERNATE DAY
     Route: 065
  3. TORVAST [Interacting]
     Active Substance: ATORVASTATIN
     Indication: HYPERCHOLESTEROLAEMIA
     Dosage: 20 MILLIGRAM, QD
  4. NOVONORM [Interacting]
     Active Substance: REPAGLINIDE
     Dosage: 0.5 MILLIGRAM, BID
     Route: 065
  5. EN [Interacting]
     Active Substance: DELORAZEPAM
     Indication: ANXIETY
     Dosage: 10 GTT DROPS, QD
     Route: 065
  6. ELIQUIS [Interacting]
     Active Substance: APIXABAN
     Indication: ATRIAL FIBRILLATION
     Dosage: 5 MILLIGRAM, QOD
  7. LARGACTIL                          /00011901/ [Interacting]
     Active Substance: CHLORPROMAZINE
     Indication: PSYCHOTIC DISORDER
     Dosage: 25 MILLIGRAM, QD
  8. RISPERIDONE. [Suspect]
     Active Substance: RISPERIDONE
     Indication: PSYCHOTIC DISORDER
     Dosage: 1 MILLIGRAM, QD
  9. PANTOPAN [Interacting]
     Active Substance: PANTOPRAZOLE SODIUM
     Indication: PRODUCT USED FOR UNKNOWN INDICATION
     Dosage: 20 MILLIGRAM
  10. SINEMET [Interacting]
     Active Substance: CARBIDOPA\LEVODOPA
     Indication: PARKINSONISM
     Dosage: 25 MILLIGRAM, QD
  11. CARDICOR [Interacting]
     Active Substance: BISOPROLOL
     Indication: ATRIAL FIBRILLATION
     Dosage: 1.25 MILLIGRAM, QOD
  12. NOVONORM [Interacting]
     Active Substance: REPAGLINIDE
     Indication: DIABETES MELLITUS
     Dosage: 0.5 MILLIGRAM, QOD
  13. TRIATEC                            /01167601/ [Interacting]
     Active Substance: HYDROCHLOROTHIAZIDE\RAMIPRIL
     Indication: HYPERTENSION
     Dosage: 25 MILLIGRAM, QD

REACTIONS (9)
  - Cognitive disorder [Recovering/Resolving]
  - Hypertonia [Recovering/Resolving]
  - Drug interaction [Unknown]
  - Cardiac murmur [Unknown]
  - Dementia [Recovering/Resolving]
  - Product prescribing issue [Unknown]
  - Cerebral atrophy [Unknown]
  - Depressed mood [Recovering/Resolving]
  - Off label use [Unknown]
